FAERS Safety Report 6265290-1 (Version None)
Quarter: 2009Q3

REPORT INFORMATION
  Report Type: 
  Country: None (occurrence: None)
  Receive Date: 20090709
  Receipt Date: 20090709
  Transmission Date: 20100115
  Serious: Yes (Hospitalization)
  Sender: FDA-Public Use
  Company Number: None

PATIENT
  Sex: Male
  Weight: 69.3 kg

DRUGS (13)
  1. WARFARIN SODIUM [Suspect]
     Indication: ATRIAL FIBRILLATION
     Dosage: PO
     Route: 048
  2. ARANESP [Concomitant]
  3. BROMOCRIPTINE [Concomitant]
  4. CENTRUM SILVER MULTIVITAMIN WITH MINERALS [Concomitant]
  5. CITRUCEL [Concomitant]
  6. COREG [Concomitant]
  7. DIGOXIN [Concomitant]
  8. FERROUS SULFATE TAB [Concomitant]
  9. FLUOXETINE HCL [Concomitant]
  10. LASIX [Concomitant]
  11. SPIRONOLACTONE [Concomitant]
  12. TYLENOL (CAPLET) [Concomitant]
  13. VITAMIN B-12 [Concomitant]

REACTIONS (2)
  - HAEMORRHAGE [None]
  - METABOLIC ENCEPHALOPATHY [None]
